FAERS Safety Report 21406257 (Version 1)
Quarter: 2022Q4

REPORT INFORMATION
  Report Type: Spontaneous
  Country: US (occurrence: None)
  Receive Date: 20221003
  Receipt Date: 20221003
  Transmission Date: 20230113
  Serious: Yes (Congenital Anomaly, Other)
  Sender: FDA-Public Use
  Company Number: None

PATIENT
  Age: 0 Year
  Sex: Male

DRUGS (9)
  1. QUETIAPINE [Suspect]
     Active Substance: QUETIAPINE
     Indication: Bipolar disorder
  2. LAMOTRIGINE [Suspect]
     Active Substance: LAMOTRIGINE
     Indication: Bipolar disorder
  3. AMPHETAMINE\DEXTROAMPHETAMINE [Suspect]
     Active Substance: AMPHETAMINE\DEXTROAMPHETAMINE
     Indication: Attention deficit hyperactivity disorder
  4. BUSPIRONE [Concomitant]
     Active Substance: BUSPIRONE HYDROCHLORIDE
  5. HYDROXYZINE [Concomitant]
     Active Substance: HYDROXYZINE HYDROCHLORIDE
  6. FLUTICASONE FUROATE\VILANTEROL TRIFENATATE [Concomitant]
     Active Substance: FLUTICASONE FUROATE\VILANTEROL TRIFENATATE
  7. OMEPRAZOLE [Concomitant]
     Active Substance: OMEPRAZOLE
  8. CETIRIZINE [Concomitant]
     Active Substance: CETIRIZINE HYDROCHLORIDE
  9. DICYCLOMINE HYDROCHLORIDE [Concomitant]
     Active Substance: DICYCLOMINE HYDROCHLORIDE

REACTIONS (3)
  - Maternal exposure during pregnancy [None]
  - Maternal drugs affecting foetus [None]
  - Birth mark [None]

NARRATIVE: CASE EVENT DATE: 20190609
